FAERS Safety Report 8380966-8 (Version None)
Quarter: 2012Q2

REPORT INFORMATION
  Report Type: 
  Country: None (occurrence: None)
  Receive Date: 20120523
  Receipt Date: 20120515
  Transmission Date: 20120825
  Serious: Yes (Other)
  Sender: FDA-Public Use
  Company Number: JP-VERTEX PHARMACEUTICALS INC.-AE-2012-005980

PATIENT
  Age: 62 Year
  Sex: Female

DRUGS (11)
  1. TELAVIC (TELAPREVIR) [Suspect]
     Indication: HEPATITIS C
     Route: 048
     Dates: start: 20120210, end: 20120419
  2. RINDERON-VG [Concomitant]
     Route: 061
     Dates: start: 20100210
  3. RIBAVIRIN [Concomitant]
     Route: 048
     Dates: start: 20120309, end: 20120405
  4. RIBAVIRIN [Concomitant]
     Route: 048
     Dates: start: 20120406, end: 20120419
  5. ACETAMINOPHEN [Concomitant]
     Route: 048
     Dates: start: 20120210
  6. RIBAVIRIN [Concomitant]
     Indication: HEPATITIS C
     Route: 048
     Dates: start: 20120210, end: 20120308
  7. PEGINTERFERON ALFA-2B [Concomitant]
     Route: 051
     Dates: start: 20120420
  8. RIBAVIRIN [Concomitant]
     Route: 048
     Dates: start: 20120420
  9. TELAVIC (TELAPREVIR) [Suspect]
     Route: 048
     Dates: start: 20120420
  10. PEGINTERFERON ALFA-2B [Concomitant]
     Indication: HEPATITIS C
     Route: 051
     Dates: start: 20120210, end: 20120419
  11. CELESTAMINE TAB [Concomitant]
     Route: 048
     Dates: start: 20120217

REACTIONS (2)
  - MALAISE [None]
  - ANAEMIA [None]
